FAERS Safety Report 21811784 (Version 1)
Quarter: 2022Q4

REPORT INFORMATION
  Report Type: Spontaneous
  Country: US (occurrence: None)
  Receive Date: 20221231
  Receipt Date: 20221231
  Transmission Date: 20230113
  Serious: Yes (Disabling, Other)
  Sender: FDA-Public Use
  Company Number: None

PATIENT
  Sex: Female
  Weight: 70.31 kg

DRUGS (12)
  1. LEVONORGESTREL [Suspect]
     Active Substance: LEVONORGESTREL
     Indication: Contraception
     Dates: start: 20110502
  2. Lexipro [Concomitant]
  3. ADDERALL [Concomitant]
     Active Substance: AMPHETAMINE ASPARTATE\AMPHETAMINE SULFATE\DEXTROAMPHETAMINE SACCHARATE\DEXTROAMPHETAMINE SULFATE
  4. BUSPAR [Concomitant]
     Active Substance: BUSPIRONE HYDROCHLORIDE
  5. ZYRTEC [Concomitant]
     Active Substance: CETIRIZINE HYDROCHLORIDE
  6. protein powder from Nuzest [Concomitant]
  7. VITAMIN D [Concomitant]
     Active Substance: VITAMIN D NOS
  8. PROBIOTICS NOS [Concomitant]
     Active Substance: PROBIOTICS NOS
  9. IRON [Concomitant]
     Active Substance: IRON
  10. FOLATE SODIUM [Concomitant]
     Active Substance: FOLATE SODIUM
  11. VITAMIN A [Concomitant]
     Active Substance: VITAMIN A
  12. VITAMIN B COMPLEX [Concomitant]
     Active Substance: CYANOCOBALAMIN\DEXPANTHENOL\NIACINAMIDE\PYRIDOXINE HYDROCHLORIDE\RIBOFLAVIN 5^-PHOSPHATE SODIUM\THIA

REACTIONS (15)
  - Attention deficit hyperactivity disorder [None]
  - Depression [None]
  - Anxiety [None]
  - Tremor [None]
  - Muscle spasms [None]
  - Mood swings [None]
  - Irritability [None]
  - Premenstrual syndrome [None]
  - Migraine [None]
  - Nausea [None]
  - Vomiting [None]
  - Asthenia [None]
  - Breast tenderness [None]
  - Withdrawal syndrome [None]
  - Neurotransmitter level altered [None]
